FAERS Safety Report 5245652-1 (Version None)
Quarter: 2007Q1

REPORT INFORMATION
  Report Type: 
  Country: None (occurrence: None)
  Receive Date: 20070223
  Receipt Date: 20070212
  Transmission Date: 20070707
  Serious: Yes (Other)
  Sender: FDA-Public Use
  Company Number: US-PFIZER INC-2007012005

PATIENT
  Sex: Female
  Weight: 78 kg

DRUGS (2)
  1. CHANTIX [Suspect]
     Indication: SMOKING CESSATION THERAPY
  2. CYMBALTA [Interacting]
     Indication: DEPRESSION

REACTIONS (6)
  - ANXIETY [None]
  - ARTHRITIS [None]
  - BACK DISORDER [None]
  - DEHYDRATION [None]
  - DRUG INTERACTION [None]
  - GAIT DISTURBANCE [None]
